FAERS Safety Report 4461618-3 (Version None)
Quarter: 2004Q3

REPORT INFORMATION
  Report Type: 
  Country: None (occurrence: None)
  Receive Date: 20040923
  Receipt Date: 20040909
  Transmission Date: 20050211
  Serious: Yes (Disabling)
  Sender: FDA-Public Use
  Company Number: 2003-BP-04138BP

PATIENT
  Age: 72 Year
  Sex: Male

DRUGS (2)
  1. MICARDIS [Suspect]
     Indication: PROPHYLAXIS
     Dosage: PO
     Route: 048
     Dates: start: 20030512, end: 20030520
  2. RAMIPRIL [Suspect]
     Indication: PROPHYLAXIS
     Dosage: PO
     Route: 048
     Dates: start: 20030512, end: 20030520

REACTIONS (1)
  - IIIRD NERVE PARALYSIS [None]
